FAERS Safety Report 7722276-5 (Version None)
Quarter: 2011Q3

REPORT INFORMATION
  Report Type: 
  Country: None (occurrence: None)
  Receive Date: 20110831
  Receipt Date: 20110822
  Transmission Date: 20111222
  Serious: Yes (Hospitalization, Other)
  Sender: FDA-Public Use
  Company Number: US-ELI_LILLY_AND_COMPANY-US201108006881

PATIENT
  Sex: Female

DRUGS (2)
  1. HUMALOG MIX 75/25 [Suspect]
     Dosage: UNK, UNKNOWN
     Dates: start: 20110809
  2. LANTUS [Concomitant]
     Dosage: UNK, UNKNOWN

REACTIONS (2)
  - LOSS OF CONSCIOUSNESS [None]
  - DRUG DISPENSING ERROR [None]
